FAERS Safety Report 25714072 (Version 3)
Quarter: 2025Q3

REPORT INFORMATION
  Report Type: Spontaneous
  Country: JP (occurrence: JP)
  Receive Date: 20250822
  Receipt Date: 20250929
  Transmission Date: 20251020
  Serious: Yes (Death, Hospitalization)
  Sender: ASTELLAS
  Company Number: JP-ASTELLAS-2025-AER-045665

PATIENT
  Age: 80 Year
  Sex: Female
  Weight: 51 kg

DRUGS (4)
  1. VYLOY [Suspect]
     Active Substance: ZOLBETUXIMAB-CLZB
     Indication: Gastric cancer
     Route: 065
  2. CAPECITABINE [Concomitant]
     Active Substance: CAPECITABINE
     Indication: Gastric cancer
     Route: 065
  3. OXALIPLATIN [Concomitant]
     Active Substance: OXALIPLATIN
     Indication: Gastric cancer
     Route: 065
  4. NOVAMIN [Concomitant]
     Indication: Nausea
     Route: 065

REACTIONS (7)
  - Death [Fatal]
  - Feeding disorder [Recovering/Resolving]
  - Diarrhoea [Unknown]
  - Weight decreased [Unknown]
  - Nausea [Unknown]
  - Blood albumin decreased [Unknown]
  - Dizziness [Unknown]
